FAERS Safety Report 5551136-3 (Version None)
Quarter: 2007Q4

REPORT INFORMATION
  Report Type: 
  Country: None (occurrence: None)
  Receive Date: 20071212
  Receipt Date: 20071211
  Transmission Date: 20080405
  Serious: Yes (Disabling)
  Sender: FDA-Public Use
  Company Number: B0499114A

PATIENT
  Age: 78 Year
  Sex: Male
  Weight: 86 kg

DRUGS (4)
  1. LAMOTRIGINE [Suspect]
     Indication: EPILEPSY
     Route: 048
     Dates: start: 20070710, end: 20071109
  2. DIGOXIN [Concomitant]
     Dates: start: 20030708
  3. WARFARIN SODIUM [Concomitant]
     Dates: start: 20030708
  4. INFLUENZA VACCINE [Concomitant]
     Dates: start: 20071008, end: 20071008

REACTIONS (1)
  - PARKINSONISM [None]
